FAERS Safety Report 21418514 (Version 1)
Quarter: 2022Q4

REPORT INFORMATION
  Report Type: Report from Study
  Country: US (occurrence: US)
  Receive Date: 20221006
  Receipt Date: 20221006
  Transmission Date: 20230112
  Serious: Yes (Hospitalization)
  Sender: FDA-Public Use
  Company Number: US-JNJFOC-20210732170

PATIENT
  Age: 67 Year
  Sex: Male
  Weight: 74 kg

DRUGS (58)
  1. CILTACABTAGENE AUTOLEUCEL [Suspect]
     Active Substance: CILTACABTAGENE AUTOLEUCEL
     Indication: Plasma cell myeloma
     Route: 042
     Dates: start: 20210621, end: 20210621
  2. DARATUMUMAB [Suspect]
     Active Substance: DARATUMUMAB
     Indication: Plasma cell myeloma
     Dosage: 15 ML
     Route: 058
     Dates: start: 20210416, end: 20210506
  3. CYCLOPHOSPHAMIDE [Concomitant]
     Active Substance: CYCLOPHOSPHAMIDE
     Indication: Plasma cell myeloma
     Dosage: 100 ML
     Dates: start: 20210616, end: 20210618
  4. FLUDARABINE [Concomitant]
     Active Substance: FLUDARABINE PHOSPHATE
     Indication: Plasma cell myeloma
     Dosage: 100 ML
     Dates: start: 20210616, end: 20210618
  5. TEMAZEPAM [Concomitant]
     Active Substance: TEMAZEPAM
     Indication: Insomnia
     Route: 048
     Dates: start: 20101026
  6. ACYCLOVIR [Concomitant]
     Active Substance: ACYCLOVIR
     Indication: Antiviral prophylaxis
     Route: 048
     Dates: start: 20121128, end: 20210712
  7. ACYCLOVIR [Concomitant]
     Active Substance: ACYCLOVIR
     Route: 048
     Dates: start: 20210721
  8. POTASSIUM CHLORIDE [Concomitant]
     Active Substance: POTASSIUM CHLORIDE
     Indication: Mineral supplementation
     Route: 048
     Dates: start: 20171031
  9. POTASSIUM CHLORIDE [Concomitant]
     Active Substance: POTASSIUM CHLORIDE
     Route: 048
     Dates: start: 20210311, end: 20210802
  10. ASPIRIN [Concomitant]
     Active Substance: ASPIRIN
     Indication: Prophylaxis
     Route: 048
     Dates: start: 20190226, end: 20210630
  11. ALLOPURINOL [Concomitant]
     Active Substance: ALLOPURINOL
     Indication: Prophylaxis
     Route: 048
     Dates: start: 20210616, end: 20210704
  12. MAGNESIUM PLUS PROTEIN (AMINO ACID CHELATE) [Concomitant]
     Indication: Prophylaxis
     Route: 048
     Dates: start: 20210616, end: 20210627
  13. MAGNESIUM PLUS PROTEIN (AMINO ACID CHELATE) [Concomitant]
     Route: 048
     Dates: start: 20210616, end: 20210630
  14. MAGNESIUM PLUS PROTEIN (AMINO ACID CHELATE) [Concomitant]
     Route: 048
     Dates: start: 20210627
  15. ROPINIROLE [Concomitant]
     Active Substance: ROPINIROLE
     Indication: Restless legs syndrome
     Route: 048
     Dates: start: 20210619
  16. ROPINIROLE [Concomitant]
     Active Substance: ROPINIROLE
     Route: 048
     Dates: start: 20210622
  17. ROPINIROLE [Concomitant]
     Active Substance: ROPINIROLE
     Route: 048
     Dates: start: 20210622
  18. ROPINIROLE [Concomitant]
     Active Substance: ROPINIROLE
     Route: 048
     Dates: start: 20210624, end: 20210630
  19. ROPINIROLE [Concomitant]
     Active Substance: ROPINIROLE
     Route: 048
     Dates: start: 20210616
  20. POLYETHYLENE GLYCOL [Concomitant]
     Active Substance: POLYETHYLENE GLYCOL
     Indication: Constipation
     Route: 048
     Dates: start: 20210619, end: 20210630
  21. SENNA/DOCUSATE [Concomitant]
     Indication: Constipation
     Dosage: 8.6-50 MG
     Route: 048
     Dates: start: 20210619, end: 20210630
  22. CAPSAICIN [Concomitant]
     Active Substance: CAPSAICIN
     Indication: Restless legs syndrome
     Dosage: 0.025 % , DOSE: 1
     Route: 061
     Dates: start: 20210619, end: 20210630
  23. VITAMIN D3 [Concomitant]
     Active Substance: CHOLECALCIFEROL
     Indication: Prophylaxis
     Dosage: 2000
     Route: 048
     Dates: start: 20210621, end: 20210730
  24. MAGNESIUM SULFATE [Concomitant]
     Active Substance: MAGNESIUM SULFATE
     Indication: Prophylaxis
     Route: 042
     Dates: start: 20210628, end: 20210628
  25. SODIUM CHLORIDE [Concomitant]
     Active Substance: SODIUM CHLORIDE
     Indication: Cytokine release syndrome
     Dosage: 0.9 %, BOLUS
     Route: 042
     Dates: start: 20210628, end: 20210628
  26. SODIUM CHLORIDE [Concomitant]
     Active Substance: SODIUM CHLORIDE
     Route: 042
     Dates: start: 20210628, end: 20210628
  27. PROCHLORPERAZINE [Concomitant]
     Active Substance: PROCHLORPERAZINE
     Indication: Nausea
     Route: 042
     Dates: start: 20210628, end: 20210628
  28. PROCHLORPERAZINE [Concomitant]
     Active Substance: PROCHLORPERAZINE
     Indication: Nausea
     Route: 048
     Dates: start: 20210629, end: 20210629
  29. GABAPENTIN [Concomitant]
     Active Substance: GABAPENTIN
     Indication: Restless legs syndrome
     Route: 048
     Dates: start: 20210701, end: 20211130
  30. GABAPENTIN [Concomitant]
     Active Substance: GABAPENTIN
     Route: 048
     Dates: start: 20210708, end: 20210710
  31. GABAPENTIN [Concomitant]
     Active Substance: GABAPENTIN
     Route: 048
     Dates: start: 20210711, end: 20210713
  32. TESTOSTERONE [Concomitant]
     Active Substance: TESTOSTERONE
     Indication: Androgen deficiency
     Route: 061
     Dates: start: 20200504
  33. TESTOSTERONE [Concomitant]
     Active Substance: TESTOSTERONE
     Route: 061
     Dates: start: 20210711, end: 20210712
  34. OXYCODONE [Concomitant]
     Active Substance: OXYCODONE
     Indication: Back pain
     Route: 048
     Dates: start: 20210318
  35. OXYCODONE [Concomitant]
     Active Substance: OXYCODONE
     Indication: Osteoarthritis
     Route: 048
     Dates: start: 20210616
  36. LEVETIRACETAM [Concomitant]
     Active Substance: LEVETIRACETAM
     Indication: Seizure prophylaxis
     Route: 048
     Dates: start: 20210616, end: 20210720
  37. ENOXAPARIN [Concomitant]
     Active Substance: ENOXAPARIN
     Indication: Thrombosis prophylaxis
     Route: 058
     Dates: start: 20210616, end: 20210628
  38. FAMOTIDINE [Concomitant]
     Active Substance: FAMOTIDINE
     Indication: Gastritis prophylaxis
     Route: 048
     Dates: start: 20210616, end: 20210630
  39. LEVOFLOXACIN [Concomitant]
     Active Substance: LEVOFLOXACIN
     Indication: Infection prophylaxis
     Route: 048
     Dates: start: 20210627, end: 20210630
  40. FLUCONAZOLE [Concomitant]
     Active Substance: FLUCONAZOLE
     Indication: Infection prophylaxis
     Route: 048
     Dates: start: 20210627, end: 20210630
  41. FLUCONAZOLE [Concomitant]
     Active Substance: FLUCONAZOLE
     Route: 048
     Dates: start: 20210712, end: 20210802
  42. CEFEPIME [Concomitant]
     Active Substance: CEFEPIME HYDROCHLORIDE
     Indication: Infection prophylaxis
     Route: 042
     Dates: start: 20210627, end: 20210630
  43. TYLENOL [Concomitant]
     Active Substance: ACETAMINOPHEN
     Indication: Cytokine release syndrome
     Route: 048
     Dates: start: 20210627, end: 20210630
  44. TYLENOL [Concomitant]
     Active Substance: ACETAMINOPHEN
     Indication: Pyrexia
     Route: 048
     Dates: start: 20210711, end: 20210711
  45. TYLENOL [Concomitant]
     Active Substance: ACETAMINOPHEN
     Indication: Headache
  46. TOCILIZUMAB [Concomitant]
     Active Substance: TOCILIZUMAB
     Indication: Cytokine release syndrome
     Route: 042
     Dates: start: 20210628, end: 20210628
  47. TOCILIZUMAB [Concomitant]
     Active Substance: TOCILIZUMAB
     Indication: Sinus tachycardia
  48. OMEPRAZOLE [Concomitant]
     Active Substance: OMEPRAZOLE
     Indication: Gastrointestinal disorder therapy
     Route: 048
     Dates: start: 20210630
  49. TRAMADOL [Concomitant]
     Active Substance: TRAMADOL
     Indication: Restless legs syndrome
     Route: 048
     Dates: start: 20210701, end: 20210707
  50. SUMATRIPTAN [Concomitant]
     Active Substance: SUMATRIPTAN
     Indication: Headache
     Route: 048
     Dates: start: 20210707, end: 20210710
  51. LORAZEPAM [Concomitant]
     Active Substance: LORAZEPAM
     Indication: Prophylaxis
     Route: 048
     Dates: start: 20210711
  52. PHOSPHORUS [Concomitant]
     Active Substance: PHOSPHORUS
     Indication: Vitamin supplementation
     Route: 048
     Dates: start: 20210630, end: 20210630
  53. PHOSPHORUS [Concomitant]
     Active Substance: PHOSPHORUS
     Indication: Restless legs syndrome
     Route: 048
     Dates: start: 20210701, end: 20210707
  54. PANTOPRAZOLE [Concomitant]
     Active Substance: PANTOPRAZOLE
     Indication: Gastrooesophageal reflux disease
     Route: 048
     Dates: start: 20210711, end: 20210712
  55. BACTRIM [Concomitant]
     Active Substance: SULFAMETHOXAZOLE\TRIMETHOPRIM
     Indication: Infection prophylaxis
     Dosage: 800-160 MG
     Route: 048
     Dates: start: 20210721
  56. MAGNESIUM [Concomitant]
     Active Substance: MAGNESIUM
     Indication: Prophylaxis
     Route: 048
     Dates: start: 20210616, end: 20210627
  57. MAGNESIUM [Concomitant]
     Active Substance: MAGNESIUM
     Route: 048
     Dates: start: 20210616, end: 20210630
  58. MAGNESIUM [Concomitant]
     Active Substance: MAGNESIUM
     Route: 048
     Dates: start: 20210627

REACTIONS (1)
  - Facial paresis [Recovered/Resolved]

NARRATIVE: CASE EVENT DATE: 20210710
